FAERS Safety Report 5367786-3 (Version None)
Quarter: 2007Q2

REPORT INFORMATION
  Report Type: 
  Country: None (occurrence: None)
  Receive Date: 20070622
  Receipt Date: 20070615
  Transmission Date: 20071010
  Serious: Yes (Hospitalization, Other)
  Sender: FDA-Public Use
  Company Number: GB-ABBOTT-07P-167-0371555-00

PATIENT
  Age: 55 Year
  Sex: Female
  Weight: 60 kg

DRUGS (13)
  1. SEVOFLURANE [Suspect]
     Indication: ANAESTHESIA
  2. ISOFLURANE [Interacting]
     Indication: ANAESTHESIA
     Dates: start: 20060601
  3. DEXAMETHASONE 0.5MG TAB [Interacting]
     Indication: ANAESTHESIA
     Dates: start: 20050701
  4. DEXAMETHASONE 0.5MG TAB [Interacting]
     Dates: start: 20061201
  5. GABAPENTIN [Interacting]
     Indication: DRUG USE FOR UNKNOWN INDICATION
  6. FENTANYL [Interacting]
     Indication: ANAESTHESIA
     Dates: start: 20050701
  7. FENTANYL [Interacting]
     Dates: start: 20060601
  8. FENTANYL [Interacting]
     Dates: start: 20061201
  9. ALFENTANIL [Interacting]
     Indication: ANAESTHESIA
     Dates: start: 20050701
  10. PROPOFOL [Interacting]
     Indication: ANAESTHESIA
     Dosage: NOT REPORTED
     Dates: start: 20050701
  11. PROPOFOL [Interacting]
     Dates: start: 20060601
  12. OXYGEN [Concomitant]
     Indication: DRUG USE FOR UNKNOWN INDICATION
     Route: 055
     Dates: start: 20060601
  13. OXYGEN [Concomitant]
     Dosage: NOT REPORTED
     Route: 055
     Dates: start: 20061201

REACTIONS (3)
  - DRUG INTERACTION [None]
  - DYSTONIA [None]
  - MYOTONIA [None]
